FAERS Safety Report 6016144-7 (Version None)
Quarter: 2008Q4

REPORT INFORMATION
  Report Type: 
  Country: None (occurrence: None)
  Receive Date: 20081222
  Receipt Date: 20081211
  Transmission Date: 20090506
  Serious: Yes (Death, Life-Threatening, Hospitalization)
  Sender: FDA-Public Use
  Company Number: DE-AVENTIS-200813246DE

PATIENT
  Age: 84 Year
  Sex: Female

DRUGS (9)
  1. LASIX [Suspect]
     Route: 048
     Dates: start: 20080218, end: 20080226
  2. RISPERDAL [Suspect]
     Route: 048
     Dates: start: 20080220, end: 20080222
  3. RISPERDAL [Suspect]
     Route: 048
     Dates: start: 20080222, end: 20080225
  4. RISPERDAL [Suspect]
     Route: 048
     Dates: start: 20080225, end: 20080226
  5. ASPIRIN [Concomitant]
     Route: 048
     Dates: start: 20071205, end: 20080226
  6. ASPIRIN [Concomitant]
     Route: 048
     Dates: start: 20071205, end: 20080226
  7. SIMVASTATIN [Concomitant]
     Route: 048
     Dates: start: 20071205, end: 20080226
  8. DIPIPERON [Concomitant]
     Route: 048
     Dates: start: 20080222, end: 20080225
  9. DIPIPERON [Concomitant]
     Route: 048
     Dates: start: 20080226, end: 20080226

REACTIONS (7)
  - COR PULMONALE [None]
  - DISTURBANCE IN ATTENTION [None]
  - HYPOTENSION [None]
  - HYPOXIC ENCEPHALOPATHY [None]
  - PULMONARY EMBOLISM [None]
  - RIGHT VENTRICULAR FAILURE [None]
  - SYNCOPE [None]
